FAERS Safety Report 6453034-X (Version None)
Quarter: 2009Q4

REPORT INFORMATION
  Report Type: 
  Country: None (occurrence: None)
  Receive Date: 20091124
  Receipt Date: 20091009
  Transmission Date: 20100525
  Serious: No
  Sender: FDA-Public Use
  Company Number: US-ABBOTT-09P-163-0589348-00

PATIENT
  Sex: Male

DRUGS (7)
  1. TRICOR [Suspect]
     Indication: BLOOD CHOLESTEROL INCREASED
     Dates: start: 20071203, end: 20080901
  2. TRICOR [Suspect]
     Dates: start: 20090101, end: 20090101
  3. TRICOR [Suspect]
     Dates: start: 20090401
  4. TRILIPIX [Suspect]
     Indication: BLOOD CHOLESTEROL INCREASED
     Dosage: UNKNOWN
     Dates: start: 20090401, end: 20090401
  5. TRILIPIX [Suspect]
     Dates: start: 20090401, end: 20090401
  6. LIPITOR [Suspect]
     Indication: BLOOD CHOLESTEROL INCREASED
     Dates: start: 20080901, end: 20090101
  7. LIPITOR [Suspect]
     Dates: start: 20090401

REACTIONS (3)
  - ANGINA PECTORIS [None]
  - DRUG INEFFECTIVE [None]
  - FATIGUE [None]
